FAERS Safety Report 6438735-1 (Version None)
Quarter: 2009Q4

REPORT INFORMATION
  Report Type: 
  Country: None (occurrence: None)
  Receive Date: 20091113
  Receipt Date: 20090930
  Transmission Date: 20100525
  Serious: Yes (Hospitalization, Other)
  Sender: FDA-Public Use
  Company Number: US-RANBAXY-2009US-23119

PATIENT

DRUGS (6)
  1. VERAPAMIL [Suspect]
     Indication: VENTRICULAR FIBRILLATION
     Dosage: 120 MG, BID
     Route: 048
  2. VERAPAMIL [Suspect]
     Indication: DIASTOLIC DYSFUNCTION
  3. BISOPROLOL [Concomitant]
     Indication: DRUG USE FOR UNKNOWN INDICATION
     Dosage: 5 MG, BID
     Route: 048
  4. AMIODARONE [Concomitant]
     Indication: DRUG USE FOR UNKNOWN INDICATION
     Dosage: 2 IN 1 DAY
     Route: 065
  5. HEPARIN [Concomitant]
     Indication: ANTICOAGULANT THERAPY
     Route: 042
  6. HEPARIN [Concomitant]
     Route: 048

REACTIONS (7)
  - BLOOD PRESSURE ABNORMAL [None]
  - CARDIAC MURMUR [None]
  - DYSPNOEA [None]
  - HEART RATE ABNORMAL [None]
  - MITRAL VALVE INCOMPETENCE [None]
  - PULMONARY OEDEMA [None]
  - RALES [None]
